FAERS Safety Report 25018110 (Version 3)
Quarter: 2025Q3

REPORT INFORMATION
  Report Type: Report from Study
  Country: US (occurrence: US)
  Receive Date: 20250227
  Receipt Date: 20250809
  Transmission Date: 20251021
  Serious: Yes (Hospitalization, Other)
  Sender: ALEXION PHARMACEUTICALS
  Company Number: US-AstraZeneca-CH-00814972A

PATIENT
  Age: 74 Year
  Sex: Female

DRUGS (1)
  1. ULTOMIRIS [Suspect]
     Active Substance: RAVULIZUMAB-CWVZ
     Indication: Atypical haemolytic uraemic syndrome
     Route: 065

REACTIONS (6)
  - Gastrooesophageal reflux disease [Unknown]
  - Skin infection [Unknown]
  - Vomiting [Unknown]
  - Somnolence [Unknown]
  - Rash [Recovering/Resolving]
  - Sleep disorder [Unknown]

NARRATIVE: CASE EVENT DATE: 20250201
